FAERS Safety Report 22310509 (Version 1)
Quarter: 2023Q2

REPORT INFORMATION
  Report Type: Spontaneous
  Country: US (occurrence: US)
  Receive Date: 20230511
  Receipt Date: 20230511
  Transmission Date: 20230721
  Serious: No
  Sender: FDA-Public Use
  Company Number: US-SANOFI-01603107

PATIENT
  Sex: Female

DRUGS (1)
  1. DUPIXENT [Suspect]
     Active Substance: DUPILUMAB
     Dosage: 300 IU, QOW
     Dates: start: 202208

REACTIONS (4)
  - Fatigue [Unknown]
  - Myalgia [Unknown]
  - Conjunctivitis [Unknown]
  - Oral herpes [Unknown]

NARRATIVE: CASE EVENT DATE: 20221001
